FAERS Safety Report 7591005-0 (Version None)
Quarter: 2011Q3

REPORT INFORMATION
  Report Type: 
  Country: None (occurrence: None)
  Receive Date: 20110705
  Receipt Date: 20110701
  Transmission Date: 20111222
  Serious: Yes (Other)
  Sender: FDA-Public Use
  Company Number: JP-PFIZER INC-2011113559

PATIENT
  Age: 77 Year
  Sex: Female

DRUGS (8)
  1. LYRICA [Suspect]
     Indication: BACK PAIN
     Dosage: 75 MG, 1X/DAY
     Route: 048
     Dates: start: 20101109, end: 20110602
  2. CELECOXIB [Concomitant]
     Indication: BACK PAIN
     Dosage: 100 MG, 2X/DAY
     Route: 048
     Dates: start: 20100604
  3. RABEPRAZOLE SODIUM [Concomitant]
     Indication: PROPHYLAXIS AGAINST GASTROINTESTINAL ULCER
     Dosage: 10 MG, 1X/DAY
     Route: 048
     Dates: start: 20100604
  4. ASPARA-CA [Suspect]
     Dosage: 200 MG/DAY
     Route: 048
  5. KETOPROFEN [Suspect]
     Dosage: UNK
     Route: 061
  6. OPALMON [Concomitant]
     Indication: PROMOTION OF PERIPHERAL CIRCULATION
     Dosage: 5 UG, 3X/DAY
     Route: 048
     Dates: start: 20100604
  7. VOLTAREN [Suspect]
     Dosage: UNK
     Route: 061
  8. ACTONEL [Concomitant]
     Indication: PROPHYLAXIS
     Dosage: 17.5 MG, WEEKLY
     Route: 048
     Dates: start: 20100629

REACTIONS (2)
  - SOMNOLENCE [None]
  - LOSS OF CONSCIOUSNESS [None]
